FAERS Safety Report 15785336 (Version 4)
Quarter: 2020Q2

REPORT INFORMATION
  Report Type: Spontaneous
  Country: US (occurrence: US)
  Receive Date: 20190103
  Receipt Date: 20200605
  Transmission Date: 20200713
  Serious: No
  Sender: FDA-Public Use
  Company Number: US-PFIZER INC-2018533868

PATIENT
  Age: 46 Year
  Sex: Female

DRUGS (2)
  1. LYRICA [Suspect]
     Active Substance: PREGABALIN
     Dosage: UNK (TOOK ONLY TWO OF 75)
  2. LYRICA [Suspect]
     Active Substance: PREGABALIN
     Dosage: 4 DF, 1X/DAY, (4 TABLETS AT NIGHT)

REACTIONS (5)
  - Pain [Not Recovered/Not Resolved]
  - Somnolence [Unknown]
  - Insomnia [Unknown]
  - Snoring [Unknown]
  - Intentional product misuse [Unknown]

NARRATIVE: CASE EVENT DATE: 201812
